FAERS Safety Report 25401149 (Version 1)
Quarter: 2025Q2

REPORT INFORMATION
  Report Type: Spontaneous
  Country: US (occurrence: US)
  Receive Date: 20250605
  Receipt Date: 20250605
  Transmission Date: 20250716
  Serious: No
  Sender: ITALFARMACO SPA
  Company Number: US-ITALFARMACO SPA-2178103

PATIENT
  Age: 15 Year
  Sex: Male
  Weight: 64.08 kg

DRUGS (10)
  1. DUVYZAT [Suspect]
     Active Substance: GIVINOSTAT
     Indication: Duchenne muscular dystrophy
     Dates: start: 20250120
  2. COREG [Concomitant]
     Active Substance: CARVEDILOL
  3. ZOMETA [Concomitant]
     Active Substance: ZOLEDRONIC ACID
  4. VITAMIN D3 [Concomitant]
     Active Substance: CHOLECALCIFEROL
  5. TESTOSTERONE [Concomitant]
     Active Substance: TESTOSTERONE
  6. SPIRONOLACTONE [Concomitant]
     Active Substance: SPIRONOLACTONE
  7. OMEPRAZOLE [Concomitant]
     Active Substance: OMEPRAZOLE
  8. MULTIVITAMIN WITH FLUORIDE NOS [Concomitant]
     Active Substance: SODIUM FLUORIDE\VITAMINS
  9. LISINOPRIL [Concomitant]
     Active Substance: LISINOPRIL
  10. EMFLAZA [Concomitant]
     Active Substance: DEFLAZACORT

REACTIONS (1)
  - Platelet count decreased [Unknown]
